FAERS Safety Report 19240830 (Version 2)
Quarter: 2021Q2

REPORT INFORMATION
  Report Type: Other
  Country: US (occurrence: US)
  Receive Date: 20210511
  Receipt Date: 20210602
  Transmission Date: 20210717
  Serious: Yes (Other)
  Sender: FDA-Public Use
  Company Number: US-DEXPHARM-20210557

PATIENT
  Age: 78 Year
  Sex: Female

DRUGS (4)
  1. METOPROLOL TARTRATE. [Interacting]
     Active Substance: METOPROLOL TARTRATE
     Indication: ANGINA PECTORIS
     Dosage: METOPROLOL TARTRATE 50 MG?TWICE DAILY
  2. ASPIRIN. [Interacting]
     Active Substance: ASPIRIN
     Dosage: SHE WAS TAKING ASPIRIN 81 MG DAILY. SHE RECEIVED 324 MG OF ASPIRIN ON THE MORNING OF CATHETERISAT...
  3. ISOSORBIDE MONONITRATE. [Suspect]
     Active Substance: ISOSORBIDE MONONITRATE
     Indication: ANGINA PECTORIS
     Dosage: ISOSORBIDE MONONITRATE 30 MG DAILY
  4. CLOPIDOGREL [Suspect]
     Active Substance: CLOPIDOGREL BISULFATE
     Indication: THROMBOSIS PROPHYLAXIS
     Dosage: SHE RECEIVED  ORAL CLOPIDOGREL 75MG (SIX TABLETS) AFTER THE DIAGNOSTIC IMAGING AND PRIOR TO THE P...
     Route: 048

REACTIONS (3)
  - Drug interaction [Unknown]
  - Oesophagitis [Recovered/Resolved]
  - Drug ineffective [Recovered/Resolved]
